FAERS Safety Report 8874473 (Version 1)
Quarter: 2012Q4

REPORT INFORMATION
  Report Type: 
  Country: US (occurrence: US)
  Receive Date: 20121030
  Receipt Date: 20121030
  Transmission Date: 20130627
  Serious: No
  Sender: FDA-Public Use
  Company Number: US-PFIZER INC-2012268449

PATIENT

DRUGS (7)
  1. LYRICA [Suspect]
     Dosage: UNK
  2. METHOCARBAMOL [Suspect]
     Indication: PAIN
     Dosage: UNK
  3. METHOCARBAMOL [Suspect]
     Indication: FIBROMYALGIA
  4. NORCO [Suspect]
     Indication: PAIN
     Dosage: UNK
  5. NORCO [Suspect]
     Indication: FIBROMYALGIA
  6. CELEXA [Suspect]
     Dosage: UNK
  7. WELLBUTRIN [Suspect]
     Dosage: UNK

REACTIONS (1)
  - Drug ineffective [Unknown]
